FAERS Safety Report 6280444-6 (Version None)
Quarter: 2009Q3

REPORT INFORMATION
  Report Type: 
  Country: None (occurrence: None)
  Receive Date: 20090724
  Receipt Date: 20090112
  Transmission Date: 20100115
  Serious: No
  Sender: FDA-Public Use
  Company Number: A0652375A

PATIENT
  Age: 69 Year
  Sex: Male

DRUGS (11)
  1. AVANDIA [Suspect]
     Dosage: 4MG PER DAY
     Route: 048
     Dates: start: 20070101, end: 20070522
  2. METFORMIN HCL [Concomitant]
  3. GLYBURIDE [Concomitant]
  4. LASIX [Concomitant]
  5. LEVITRA [Concomitant]
     Dosage: 20MG UNKNOWN
     Route: 048
  6. LISINOPRIL [Concomitant]
     Dosage: 40MG UNKNOWN
     Route: 048
  7. TRICOR [Concomitant]
     Dosage: 145MG UNKNOWN
     Route: 048
  8. WELLBUTRIN XL [Concomitant]
     Dosage: 150MG UNKNOWN
     Route: 048
  9. PENICILLIN [Concomitant]
     Dosage: 500MG UNKNOWN
     Route: 048
  10. HYDROCHLOROTHIAZIDE [Concomitant]
     Route: 048
  11. BUPROPION HCL [Concomitant]
     Dosage: 150MG UNKNOWN
     Route: 048

REACTIONS (7)
  - ARRHYTHMIA [None]
  - BLOOD CREATININE INCREASED [None]
  - BLOOD UREA INCREASED [None]
  - DIZZINESS [None]
  - FATIGUE [None]
  - OEDEMA PERIPHERAL [None]
  - RENAL INJURY [None]
